FAERS Safety Report 6072426-4 (Version None)
Quarter: 2009Q1

REPORT INFORMATION
  Report Type: 
  Country: None (occurrence: None)
  Receive Date: 20090210
  Receipt Date: 20090129
  Transmission Date: 20090719
  Serious: Yes (Other)
  Sender: FDA-Public Use
  Company Number: PH-JNJFOC-20090107448

PATIENT
  Age: 82 Year
  Sex: Female

DRUGS (1)
  1. DOLCET [Suspect]
     Indication: MYALGIA
     Route: 048

REACTIONS (1)
  - SPEECH DISORDER [None]
